FAERS Safety Report 24371319 (Version 1)
Quarter: 2024Q3

REPORT INFORMATION
  Report Type: Spontaneous
  Country: ES (occurrence: ES)
  Receive Date: 20240927
  Receipt Date: 20240927
  Transmission Date: 20241017
  Serious: Yes (Life-Threatening, Hospitalization)
  Sender: HETERO
  Company Number: None

PATIENT
  Age: 75 Year
  Sex: Male

DRUGS (10)
  1. CLOPIDOGREL [Suspect]
     Active Substance: CLOPIDOGREL BISULFATE
     Indication: Antiplatelet therapy
     Dosage: 75 MG, QD(1 PER DAY)
     Route: 065
  2. EMPAGLIFLOZIN [Concomitant]
     Active Substance: EMPAGLIFLOZIN
     Indication: Product used for unknown indication
     Dosage: 10 MG, QD(1 PER DAY)
     Route: 065
  3. LOSARTAN [Concomitant]
     Active Substance: LOSARTAN\LOSARTAN POTASSIUM
     Indication: Product used for unknown indication
     Dosage: 50 MG, QD(1 PER DAY)
     Route: 065
  4. RABEPRAZOLE [Concomitant]
     Active Substance: RABEPRAZOLE
     Indication: Product used for unknown indication
     Dosage: 10 MG, QD(1 PER DAY)
     Route: 065
  5. METFORMIN\SITAGLIPTIN [Concomitant]
     Active Substance: METFORMIN\SITAGLIPTIN
     Indication: Product used for unknown indication
     Dosage: 1 DOSAGE FORM, QD
     Route: 065
  6. CLOMIPRAMINE [Concomitant]
     Active Substance: CLOMIPRAMINE
     Indication: Product used for unknown indication
     Dosage: 25 MG, QD(1 PER DAY)
     Route: 065
  7. BISOPROLOL [Concomitant]
     Active Substance: BISOPROLOL\BISOPROLOL FUMARATE
     Indication: Product used for unknown indication
     Dosage: 2.5 MG, QD(1 PER DAY)
     Route: 065
  8. ASPIRIN [Concomitant]
     Active Substance: ASPIRIN
     Indication: Antiplatelet therapy
     Dosage: 100 MG, QD(1 PER DAY)
     Route: 065
  9. RANOLAZINE [Concomitant]
     Active Substance: RANOLAZINE
     Indication: Product used for unknown indication
     Dosage: 500 MG, BID(1 PER EVERY 12 HOURS)
     Route: 065
  10. ATORVASTATIN [Concomitant]
     Active Substance: ATORVASTATIN
     Indication: Product used for unknown indication
     Dosage: 40 MG, QD(1 PER DAY)
     Route: 065

REACTIONS (6)
  - Hyperbilirubinaemia [Unknown]
  - Proteinuria [Recovering/Resolving]
  - Albuminuria [Recovering/Resolving]
  - Encephalopathy [Recovered/Resolved]
  - Thrombotic microangiopathy [Recovered/Resolved]
  - Acute kidney injury [Recovered/Resolved]
